FAERS Safety Report 8722047 (Version 4)
Quarter: 2012Q4

REPORT INFORMATION
  Report Type: Report from Study
  Country: FR (occurrence: FR)
  Receive Date: 20120814
  Receipt Date: 20121205
  Transmission Date: 20130627
  Serious: Yes (Hospitalization)
  Sender: FDA-Public Use
  Company Number: FR-BRISTOL-MYERS SQUIBB COMPANY-16847519

PATIENT
  Age: 66 Year
  Sex: Female

DRUGS (14)
  1. IPILIMUMAB [Suspect]
     Indication: METASTATIC MALIGNANT MELANOMA
     Dosage: 1DF:3mg Vs 10mg/kg.
     Route: 042
     Dates: start: 20120628, end: 20120809
  2. SALBUTAMOL [Concomitant]
     Dosage: ROA:Oral inhalation
     Route: 055
     Dates: start: 201106
  3. ZOPICLONE [Concomitant]
     Dosage: 1Df: 7.5(units no.s).
     Route: 048
     Dates: start: 2011
  4. DESLORATADINE [Concomitant]
     Dates: start: 201106
  5. MONTELUKAST [Concomitant]
     Dosage: Montelukast sodium
     Route: 048
     Dates: start: 201106
  6. RENITEC [Concomitant]
  7. CO-RENITEC [Concomitant]
     Dosage: 1 tabs
     Route: 048
     Dates: start: 201106
  8. FUROSEMIDE [Concomitant]
     Dates: start: 201106, end: 20110819
  9. BROMAZEPAM [Concomitant]
     Route: 048
     Dates: start: 201106
  10. PREGABALIN [Concomitant]
     Route: 048
     Dates: start: 20120506
  11. DESLORATADINE [Concomitant]
     Route: 048
     Dates: start: 20120718
  12. BETAMETHASONE [Concomitant]
     Route: 062
     Dates: start: 201207
  13. SERETIDE [Concomitant]
     Route: 048
  14. INEGY [Concomitant]
     Route: 048
     Dates: start: 201106

REACTIONS (2)
  - Thrombocytopenia [Recovered/Resolved]
  - Diarrhoea [Recovered/Resolved]
